FAERS Safety Report 5372259-8 (Version None)
Quarter: 2007Q2

REPORT INFORMATION
  Report Type: 
  Country: None (occurrence: None)
  Receive Date: 20070615
  Receipt Date: 20070228
  Transmission Date: 20071010
  Serious: Yes (Death)
  Sender: FDA-Public Use
  Company Number: 200619680US

PATIENT
  Age: 81 Year
  Sex: Female
  Weight: 42.72 kg

DRUGS (9)
  1. LANTUS [Suspect]
     Indication: DIABETES MELLITUS NON-INSULIN-DEPENDENT
     Dosage: 20 U
     Dates: start: 20061124
  2. LANTUS [Suspect]
     Indication: DIABETES MELLITUS NON-INSULIN-DEPENDENT
     Dates: start: 20061124
  3. ATORVASTATIN CALCIUM           (LIPITOR) [Concomitant]
  4. LEVOTHYROXINE SODIUM        (LEVOXYL) [Concomitant]
  5. ALTACE [Concomitant]
  6. DONEPEZIL HCL [Concomitant]
  7. DOXEPIN HCL [Concomitant]
  8. METOPROLOL SUCCINATE [Concomitant]
  9. PAROXETINE [Concomitant]

REACTIONS (3)
  - BLOOD GLUCOSE INCREASED [None]
  - DRUG INEFFECTIVE [None]
  - WHITE BLOOD CELL COUNT INCREASED [None]
